FAERS Safety Report 4436029-7 (Version None)
Quarter: 2004Q3

REPORT INFORMATION
  Report Type: 
  Country: None (occurrence: None)
  Receive Date: 20040826
  Receipt Date: 20040817
  Transmission Date: 20050211
  Serious: Yes (Death)
  Sender: FDA-Public Use
  Company Number: 163-20785-04070415

PATIENT
  Age: 37 Year
  Sex: Male

DRUGS (1)
  1. THALOMID [Suspect]
     Indication: ACQUIRED IMMUNODEFICIENCY SYNDROME
     Dosage: 100 MG, DAILY, ORAL
     Route: 048
     Dates: start: 20021203, end: 20030401

REACTIONS (4)
  - ANAEMIA [None]
  - DISEASE PROGRESSION [None]
  - END STAGE AIDS [None]
  - MYCOBACTERIUM AVIUM COMPLEX INFECTION [None]
